FAERS Safety Report 7473131-X (Version None)
Quarter: 2011Q2

REPORT INFORMATION
  Report Type: 
  Country: None (occurrence: None)
  Receive Date: 20110511
  Receipt Date: 20110504
  Transmission Date: 20111010
  Serious: Yes (Hospitalization)
  Sender: FDA-Public Use
  Company Number: NL-TEVA-280884ISR

PATIENT
  Sex: Male
  Weight: 7 kg

DRUGS (1)
  1. AMOXICILLIN [Suspect]
     Indication: UPPER RESPIRATORY TRACT INFECTION
     Dosage: 3 DOSAGE FORMS; 25 TOT 50 MG/KG IN 3 DD
     Dates: start: 20101213

REACTIONS (2)
  - BILIRUBIN CONJUGATED INCREASED [None]
  - CHOLELITHIASIS [None]
